FAERS Safety Report 8438190-6 (Version None)
Quarter: 2012Q2

REPORT INFORMATION
  Report Type: 
  Country: None (occurrence: None)
  Receive Date: 20120614
  Receipt Date: 20120611
  Transmission Date: 20120825
  Serious: Yes (Other)
  Sender: FDA-Public Use
  Company Number: CHPA2012US011932

PATIENT
  Age: 57 Year
  Sex: Male

DRUGS (1)
  1. VOLTAREN [Suspect]
     Indication: ARTHRALGIA
     Dosage: SMALL DOSE, QD
     Route: 061
     Dates: end: 20120606

REACTIONS (4)
  - UNDERDOSE [None]
  - BRONCHITIS [None]
  - LARYNGITIS [None]
  - DRUG ADMINISTERED AT INAPPROPRIATE SITE [None]
